FAERS Safety Report 24257337 (Version 1)
Quarter: 2024Q3

REPORT INFORMATION
  Report Type: Spontaneous
  Country: US (occurrence: US)
  Receive Date: 20240828
  Receipt Date: 20240828
  Transmission Date: 20241017
  Serious: Yes (Death, Other)
  Sender: HIKMA
  Company Number: HIKM2407354

PATIENT
  Sex: Male

DRUGS (1)
  1. LORAZEPAM INTENSOL [Suspect]
     Active Substance: LORAZEPAM
     Indication: Product used for unknown indication
     Dosage: UNKNOWN
     Route: 065

REACTIONS (1)
  - Drug hypersensitivity [Fatal]
